FAERS Safety Report 18296586 (Version 4)
Quarter: 2020Q4

REPORT INFORMATION
  Report Type: Report from Study
  Country: US (occurrence: US)
  Receive Date: 20200922
  Receipt Date: 20201016
  Transmission Date: 20210113
  Serious: No
  Sender: FDA-Public Use
  Company Number: NVSC2020US256726

PATIENT
  Age: 32 Year
  Sex: Female

DRUGS (2)
  1. GLATOPA [Suspect]
     Active Substance: GLATIRAMER ACETATE
     Dosage: 40 MG 3X PER WEEK
     Route: 058
     Dates: start: 20200918, end: 20200918
  2. GLATOPA [Suspect]
     Active Substance: GLATIRAMER ACETATE
     Indication: MULTIPLE SCLEROSIS
     Dosage: 40 MG 3X PER WEEK
     Route: 058
     Dates: start: 20200914

REACTIONS (4)
  - Injection site mass [Unknown]
  - Injection site pain [Unknown]
  - Anxiety [Recovered/Resolved]
  - Injection site warmth [Unknown]

NARRATIVE: CASE EVENT DATE: 20200918
